FAERS Safety Report 5282100-X (Version None)
Quarter: 2007Q1

REPORT INFORMATION
  Report Type: 
  Country: None (occurrence: None)
  Receive Date: 20070330
  Receipt Date: 20070321
  Transmission Date: 20070707
  Serious: Yes (Other)
  Sender: FDA-Public Use
  Company Number: US-PFIZER INC-2006112090

PATIENT
  Age: 31 Year
  Sex: Male

DRUGS (1)
  1. CAVERJECT IMPULSE DUAL CHAMBER SYSTEM POWDER, STERILE [Suspect]

REACTIONS (3)
  - ACCIDENTAL NEEDLE STICK [None]
  - ANXIETY [None]
  - SWELLING [None]
